FAERS Safety Report 5972305-4 (Version None)
Quarter: 2008Q4

REPORT INFORMATION
  Report Type: 
  Country: None (occurrence: None)
  Receive Date: 20081201
  Receipt Date: 20080710
  Transmission Date: 20090506
  Serious: No
  Sender: FDA-Public Use
  Company Number: US-TEVA-174778USA

PATIENT
  Age: 68 Year
  Sex: Female

DRUGS (3)
  1. SALBUTAMOL SULFATE INHALATION, 0.09 MG [Suspect]
     Indication: DYSPNOEA
     Route: 055
  2. SERETIDE [Suspect]
     Indication: DYSPNOEA
     Route: 055
  3. TIOTROPIUM BROMIDE [Concomitant]
     Indication: DYSPNOEA
     Route: 055

REACTIONS (6)
  - BODY TEMPERATURE INCREASED [None]
  - FLUSHING [None]
  - HEADACHE [None]
  - HYPERSENSITIVITY [None]
  - PAIN [None]
  - TREMOR [None]
